FAERS Safety Report 20605069 (Version 1)
Quarter: 2022Q1

REPORT INFORMATION
  Report Type: Spontaneous
  Country: FR (occurrence: None)
  Receive Date: 20220317
  Receipt Date: 20220317
  Transmission Date: 20220423
  Serious: Yes (Other)
  Sender: FDA-Public Use
  Company Number: None

PATIENT
  Age: 41 Year
  Sex: Male

DRUGS (1)
  1. OCREVUS [Suspect]
     Active Substance: OCRELIZUMAB
     Indication: Multiple sclerosis
     Dosage: 600 MG/6 MOIS
     Route: 042
     Dates: start: 201904

REACTIONS (3)
  - Tendon rupture [Recovered/Resolved]
  - Ligament rupture [Recovered/Resolved]
  - Ligament rupture [Recovering/Resolving]

NARRATIVE: CASE EVENT DATE: 20200801
